APPROVED DRUG PRODUCT: GLEOSTINE
Active Ingredient: LOMUSTINE
Strength: 10MG
Dosage Form/Route: CAPSULE;ORAL
Application: N017588 | Product #001 | TE Code: AB
Applicant: AZURITY PHARMACEUTICALS INC
Approved: Approved Prior to Jan 1, 1982 | RLD: Yes | RS: No | Type: RX